FAERS Safety Report 6376399-6 (Version None)
Quarter: 2009Q3

REPORT INFORMATION
  Report Type: 
  Country: None (occurrence: None)
  Receive Date: 20090925
  Receipt Date: 20090916
  Transmission Date: 20100115
  Serious: Yes (Hospitalization)
  Sender: FDA-Public Use
  Company Number: US-JNJFOC-20090905085

PATIENT
  Age: 48 Year
  Sex: Female

DRUGS (13)
  1. PREZISTA [Suspect]
     Indication: HIV INFECTION
     Route: 048
  2. INTELENCE [Suspect]
     Indication: HIV INFECTION
     Route: 048
  3. RITONAVIR [Suspect]
     Indication: HIV INFECTION
  4. RALTEGRAVIR [Suspect]
     Indication: HIV INFECTION
  5. ACYCLOVIR [Concomitant]
  6. CELEBREX [Concomitant]
  7. CALCIUM [Concomitant]
  8. L-CARNITINE [Concomitant]
  9. ASPIRIN [Concomitant]
  10. METFORMIN [Concomitant]
  11. PRAVACHOL [Concomitant]
  12. BENICAR [Concomitant]
  13. PIOGLITAZONE [Concomitant]

REACTIONS (2)
  - ANAEMIA [None]
  - THROMBOCYTOPENIA [None]
